FAERS Safety Report 6599069-8 (Version None)
Quarter: 2010Q1

REPORT INFORMATION
  Report Type: 
  Country: None (occurrence: None)
  Receive Date: 20100224
  Receipt Date: 20090819
  Transmission Date: 20100710
  Serious: No
  Sender: FDA-Public Use
  Company Number: US-BRISTOL-MYERS SQUIBB COMPANY-14737274

PATIENT
  Age: 65 Year
  Sex: Female

DRUGS (7)
  1. GLUCOPHAGE [Suspect]
     Dosage: EARLIER THERAPY FROM 1995-2003
     Dates: start: 19950101, end: 20030101
  2. NORPRAMIN [Concomitant]
  3. LANTUS [Concomitant]
  4. NEURONTIN [Concomitant]
  5. PROTONIX [Concomitant]
  6. BENICAR [Concomitant]
  7. SYNTHROID [Concomitant]

REACTIONS (2)
  - ABDOMINAL DISCOMFORT [None]
  - FATIGUE [None]
